FAERS Safety Report 20428547 (Version 2)
Quarter: 2022Q1

REPORT INFORMATION
  Report Type: Spontaneous
  Country: US (occurrence: US)
  Receive Date: 20220204
  Receipt Date: 20220316
  Transmission Date: 20220423
  Serious: Yes (Hospitalization)
  Sender: FDA-Public Use
  Company Number: US-JNJFOC-20220162699

PATIENT
  Sex: Female

DRUGS (1)
  1. XARELTO [Suspect]
     Active Substance: RIVAROXABAN
     Indication: Product used for unknown indication
     Dosage: PRESCRIPTION NUMBER- 131231
     Route: 048

REACTIONS (3)
  - Hospitalisation [Unknown]
  - Urticaria [Unknown]
  - Product formulation issue [Unknown]

NARRATIVE: CASE EVENT DATE: 20210801
